FAERS Safety Report 6094632-5 (Version None)
Quarter: 2009Q1

REPORT INFORMATION
  Report Type: 
  Country: None (occurrence: None)
  Receive Date: 20090226
  Receipt Date: 20090216
  Transmission Date: 20090719
  Serious: Yes (Hospitalization)
  Sender: FDA-Public Use
  Company Number: DE-GENENTECH-273415

PATIENT
  Sex: Female

DRUGS (8)
  1. AVASTIN [Suspect]
     Indication: BREAST CANCER METASTATIC
     Dosage: 10 MG/KG, Q2W
     Route: 042
     Dates: start: 20071119, end: 20080616
  2. ZOLEDRONIC ACID [Interacting]
     Indication: METASTASES TO BONE
     Dosage: 4 MG, Q4W
     Route: 065
     Dates: start: 20050401, end: 20071001
  3. PAMIDRONATE DISODIUM [Interacting]
     Indication: METASTASES TO BONE
     Dosage: UNK
     Route: 065
     Dates: start: 20071001
  4. PACLITAXEL [Concomitant]
     Indication: METASTASES TO PLEURA
     Dosage: 90 MG/M2, UNK
     Dates: start: 20071119, end: 20080325
  5. MORPHINE [Concomitant]
     Indication: PAIN
     Dosage: UNK
  6. RAMIPRIL [Concomitant]
     Indication: HYPERTENSION
     Dosage: UNK
  7. HYDROCHLOROTHIAZIDE [Concomitant]
     Indication: HYPERTENSION
     Dosage: UNK
  8. LERCANIDIPINE [Concomitant]
     Indication: HYPERTENSION
     Dosage: UNK
     Dates: start: 20071001

REACTIONS (2)
  - DRUG INTERACTION [None]
  - OSTEONECROSIS [None]
